FAERS Safety Report 17394655 (Version 2)
Quarter: 2020Q2

REPORT INFORMATION
  Report Type: Report from Study
  Country: US (occurrence: US)
  Receive Date: 20200210
  Receipt Date: 20200406
  Transmission Date: 20200713
  Serious: Yes (Other)
  Sender: FDA-Public Use
  Company Number: US-ROCHE-2536130

PATIENT
  Sex: Female

DRUGS (10)
  1. ACTEMRA [Suspect]
     Active Substance: TOCILIZUMAB
     Indication: TEMPORAL ARTERITIS
     Dosage: PEN INJECTOR?INJECT 162MG SUBCUTANEOUSLY EVERY WEEK
     Route: 058
  2. PREDNISONE. [Concomitant]
     Active Substance: PREDNISONE
  3. ACTEMRA [Suspect]
     Active Substance: TOCILIZUMAB
     Indication: RED BLOOD CELL SEDIMENTATION RATE INCREASED
  4. ACTEMRA [Suspect]
     Active Substance: TOCILIZUMAB
     Indication: OSTEOARTHRITIS
  5. ACTEMRA [Suspect]
     Active Substance: TOCILIZUMAB
     Indication: ARRHYTHMIA
  6. HYDROCORTISONE. [Concomitant]
     Active Substance: HYDROCORTISONE
  7. ACTEMRA [Suspect]
     Active Substance: TOCILIZUMAB
     Indication: STEROID THERAPY
  8. ACTEMRA [Suspect]
     Active Substance: TOCILIZUMAB
     Indication: HYPOTHYROIDISM
  9. ACTEMRA [Suspect]
     Active Substance: TOCILIZUMAB
     Indication: MALIGNANT MELANOMA
  10. ACTEMRA [Suspect]
     Active Substance: TOCILIZUMAB
     Indication: ARTHROPATHY

REACTIONS (7)
  - Adverse drug reaction [Unknown]
  - Ear discomfort [Unknown]
  - Sleep disorder [Unknown]
  - Balance disorder [Unknown]
  - Adrenal insufficiency [Unknown]
  - Heart rate increased [Unknown]
  - Meniere^s disease [Unknown]
